FAERS Safety Report 8971134 (Version 1)
Quarter: 2012Q4

REPORT INFORMATION
  Report Type: Report from Study
  Country: US (occurrence: US)
  Receive Date: 20121218
  Receipt Date: 20121218
  Transmission Date: 20130627
  Serious: Yes (Other)
  Sender: FDA-Public Use
  Company Number: US-ASTELLAS-2012US012240

PATIENT

DRUGS (2)
  1. ERLOTINIB TABLET [Suspect]
     Indication: NEOPLASM
     Dosage: 150 mg, UID/QD
     Route: 048
  2. TIVANTINIB [Suspect]
     Indication: NEOPLASM
     Dosage: 240 mg, bid
     Route: 048

REACTIONS (1)
  - Sick sinus syndrome [Recovered/Resolved]
